FAERS Safety Report 22599064 (Version 3)
Quarter: 2024Q3

REPORT INFORMATION
  Report Type: Report from Study
  Country: US (occurrence: US)
  Receive Date: 20230614
  Receipt Date: 20240923
  Transmission Date: 20241016
  Serious: No
  Sender: GLAXOSMITHKLINE
  Company Number: US-GLAXOSMITHKLINE-US2023AMR081818

PATIENT
  Sex: Female

DRUGS (2)
  1. NIRAPARIB [Suspect]
     Active Substance: NIRAPARIB
     Indication: Ovarian cancer
     Dosage: UNK
     Route: 048
     Dates: start: 20230508, end: 20230602
  2. NIRAPARIB [Suspect]
     Active Substance: NIRAPARIB
     Dosage: 200 MG, QD
     Dates: start: 202405

REACTIONS (10)
  - Platelet count decreased [Unknown]
  - White blood cell count decreased [Unknown]
  - Hypertension [Not Recovered/Not Resolved]
  - Hyperhidrosis [Not Recovered/Not Resolved]
  - Fatigue [Not Recovered/Not Resolved]
  - Insomnia [Recovering/Resolving]
  - Vomiting [Unknown]
  - Gastroenteritis viral [Unknown]
  - Decreased activity [Not Recovered/Not Resolved]
  - Product dose omission issue [Unknown]
